FAERS Safety Report 4919446-8 (Version None)
Quarter: 2006Q1

REPORT INFORMATION
  Report Type: 
  Country: None (occurrence: None)
  Receive Date: 20060216
  Receipt Date: 20060131
  Transmission Date: 20060701
  Serious: Yes (Disabling)
  Sender: FDA-Public Use
  Company Number: 2005BL006335

PATIENT
  Age: 61 Year
  Sex: Female
  Weight: 81.6475 kg

DRUGS (7)
  1. NEOMYCIN AND POLYMYXIN B SULFATE AND HYDROCORTISONE OTIC SOLUTION USP [Suspect]
     Indication: OTITIS EXTERNA
     Dosage: 4 DROP; 4 TIMES A DAY; TOPICAL
     Route: 061
     Dates: start: 20051014, end: 20051021
  2. AMOXICILLIN [Concomitant]
  3. GUAIFENESIN [Concomitant]
  4. EFFEXOR [Concomitant]
  5. OXYCODONE [Concomitant]
  6. THYROXIN [Concomitant]
  7. ALLOPURINOL [Concomitant]

REACTIONS (8)
  - BALANCE DISORDER [None]
  - CONTRAINDICATION TO MEDICAL TREATMENT [None]
  - DRUG PRESCRIBING ERROR [None]
  - EAR DISCOMFORT [None]
  - FUNGAL INFECTION [None]
  - IMPAIRED WORK ABILITY [None]
  - PAIN [None]
  - SWELLING [None]
